FAERS Safety Report 8181817-7 (Version None)
Quarter: 2012Q1

REPORT INFORMATION
  Report Type: 
  Country: None (occurrence: None)
  Receive Date: 20120302
  Receipt Date: 20120227
  Transmission Date: 20120608
  Serious: Yes (Other)
  Sender: FDA-Public Use
  Company Number: US-PFIZER INC-2012051515

PATIENT
  Sex: Male
  Weight: 90.703 kg

DRUGS (3)
  1. GLUCOTROL [Suspect]
     Indication: DIABETES MELLITUS
     Dosage: 850/10 MG, DAILY
  2. VIAGRA [Suspect]
     Indication: ERECTILE DYSFUNCTION
     Dosage: 100 MG, AS NEEDED
     Dates: start: 19930101
  3. NORCO [Concomitant]
     Indication: BACK DISORDER
     Dosage: UNK

REACTIONS (2)
  - MEMORY IMPAIRMENT [None]
  - PROSTATIC SPECIFIC ANTIGEN INCREASED [None]
